FAERS Safety Report 16070774 (Version 1)
Quarter: 2019Q1

REPORT INFORMATION
  Report Type: Spontaneous
  Country: ES (occurrence: ES)
  Receive Date: 20190314
  Receipt Date: 20190314
  Transmission Date: 20190418
  Serious: Yes (Life-Threatening, Hospitalization)
  Sender: FDA-Public Use
  Company Number: ES-ACCORD-112393

PATIENT
  Age: 52 Year
  Sex: Female

DRUGS (5)
  1. TOPIRAMATE. [Interacting]
     Active Substance: TOPIRAMATE
     Dosage: DATE AND TIME OF LAST ADMINISTRATION: 25-AUG-2018
     Route: 048
     Dates: start: 20180825
  2. MIRTAZAPINE. [Interacting]
     Active Substance: MIRTAZAPINE
     Dosage: DATE AND TIME OF LAST ADMINISTRATION: 25-AUG-2018
     Route: 048
     Dates: start: 20180825
  3. DESVENLAFAXIN/DESVENLAFAXINSUCCINATE [Interacting]
     Active Substance: DESVENLAFAXINE SUCCINATE
     Dosage: DATE AND TIME OF LAST ADMINISTRATION: 25-AUG-2018
     Route: 048
     Dates: start: 20180825
  4. QUETIAPINE. [Suspect]
     Active Substance: QUETIAPINE
     Dosage: DATE AND TIME OF LAST ADMINISTRATION: 25-AUG-2018
     Route: 048
     Dates: start: 20180825
  5. DIAZEPAM. [Interacting]
     Active Substance: DIAZEPAM
     Dosage: DATE AND TIME OF LAST ADMINISTRATION: 25-AUG-2018
     Route: 048
     Dates: start: 20180825

REACTIONS (3)
  - Suicide attempt [Unknown]
  - Depressed level of consciousness [Recovered/Resolved]
  - Drug interaction [Unknown]

NARRATIVE: CASE EVENT DATE: 20180825
